FAERS Safety Report 26037474 (Version 1)
Quarter: 2025Q4

REPORT INFORMATION
  Report Type: Spontaneous
  Country: US (occurrence: US)
  Receive Date: 20251112
  Receipt Date: 20251112
  Transmission Date: 20260118
  Serious: Yes (Hospitalization, Other)
  Sender: NOVARTIS
  Company Number: US-002147023-NVSC2025US170912

PATIENT
  Age: 0 Year
  Sex: Female

DRUGS (3)
  1. MEKINIST [Suspect]
     Active Substance: TRAMETINIB DIMETHYL SULFOXIDE
     Indication: Neoplasm malignant
     Dosage: 3 ML, QD (ORAL SOLUTION)
     Route: 048
     Dates: start: 202510
  2. MEKINIST [Suspect]
     Active Substance: TRAMETINIB DIMETHYL SULFOXIDE
     Dosage: 1.5 UNK, QD
     Route: 065
  3. TAFINLAR [Suspect]
     Active Substance: DABRAFENIB MESYLATE
     Indication: Neoplasm malignant
     Dosage: 10 MG, BID (O/S)
     Route: 048
     Dates: start: 202509

REACTIONS (2)
  - Haematochezia [Unknown]
  - Rash [Unknown]

NARRATIVE: CASE EVENT DATE: 20251007
